FAERS Safety Report 7824037-5 (Version None)
Quarter: 2011Q4

REPORT INFORMATION
  Report Type: 
  Country: None (occurrence: None)
  Receive Date: 20111019
  Receipt Date: 20111010
  Transmission Date: 20120403
  Serious: Yes (Other)
  Sender: FDA-Public Use
  Company Number: PHEH2011US06361

PATIENT
  Sex: Female

DRUGS (1)
  1. EXJADE [Suspect]
     Indication: IRON OVERLOAD
     Dates: start: 20070111, end: 20081201

REACTIONS (3)
  - RENAL DISORDER [None]
  - PROTEINURIA [None]
  - HAEMOGLOBIN DECREASED [None]
